FAERS Safety Report 20650436 (Version 1)
Quarter: 2022Q1

REPORT INFORMATION
  Report Type: Spontaneous
  Country: IT (occurrence: IT)
  Receive Date: 20220329
  Receipt Date: 20220329
  Transmission Date: 20220424
  Serious: Yes (Other)
  Sender: FDA-Public Use
  Company Number: None

PATIENT
  Age: 82 Year
  Sex: Male

DRUGS (8)
  1. PLAVIX [Suspect]
     Active Substance: CLOPIDOGREL BISULFATE
     Dosage: UNK
     Dates: start: 20220101, end: 20220304
  2. ATORVASTATIN [Concomitant]
     Active Substance: ATORVASTATIN
  3. BISOPROLOL [Concomitant]
     Active Substance: BISOPROLOL
  4. AVODART [Concomitant]
     Active Substance: DUTASTERIDE
  5. BROTIZOLAM [Concomitant]
     Active Substance: BROTIZOLAM
  6. RANEXA [RANOLAZINE] [Concomitant]
  7. SILODOSIN [Concomitant]
     Active Substance: SILODOSIN
  8. RANEXA [RIVAROXABAN] [Concomitant]
     Dosage: 2 DF

REACTIONS (1)
  - Anaemia [Recovering/Resolving]

NARRATIVE: CASE EVENT DATE: 20220304
